FAERS Safety Report 8846593 (Version 1)
Quarter: 2012Q4

REPORT INFORMATION
  Report Type: 
  Country: US (occurrence: US)
  Receive Date: 20121017
  Receipt Date: 20121017
  Transmission Date: 20130627
  Serious: Yes (Other)
  Sender: FDA-Public Use
  Company Number: US-BAYER-2012-106012

PATIENT
  Age: 40 Year
  Sex: Female

DRUGS (1)
  1. MIRENA [Suspect]
     Indication: CONTRACEPTION
     Dosage: Daily dose 20 ?g
     Route: 015
     Dates: start: 201202, end: 20121004

REACTIONS (9)
  - Post procedural haemorrhage [Not Recovered/Not Resolved]
  - Device dislocation [None]
  - Alopecia [Not Recovered/Not Resolved]
  - Headache [Not Recovered/Not Resolved]
  - Uterine pain [None]
  - Medical device complication [None]
  - Abdominal pain [None]
  - Procedural pain [Recovered/Resolved]
  - Device dislocation [None]
